FAERS Safety Report 21383840 (Version 1)
Quarter: 2022Q3

REPORT INFORMATION
  Report Type: Report from Study
  Country: CO (occurrence: CO)
  Receive Date: 20220928
  Receipt Date: 20220928
  Transmission Date: 20221027
  Serious: Yes (Other)
  Sender: FDA-Public Use
  Company Number: CO-NOVARTISPH-NVSC2022CO158493

PATIENT
  Sex: Male
  Weight: 95 kg

DRUGS (1)
  1. TASIGNA [Suspect]
     Active Substance: NILOTINIB
     Indication: Chronic myeloid leukaemia
     Dosage: 400 MG, Q12H
     Route: 048
     Dates: start: 20220304

REACTIONS (14)
  - Irritable bowel syndrome [Recovered/Resolved]
  - Diarrhoea haemorrhagic [Recovered/Resolved]
  - Headache [Recovered/Resolved]
  - Diarrhoea [Recovering/Resolving]
  - Fatigue [Unknown]
  - Vomiting [Unknown]
  - Pain [Unknown]
  - Asthenia [Unknown]
  - Proctalgia [Unknown]
  - Eating disorder [Unknown]
  - Fear [Unknown]
  - Chills [Unknown]
  - Malaise [Unknown]
  - Blood triglycerides increased [Recovered/Resolved]
